FAERS Safety Report 17807547 (Version 2)
Quarter: 2021Q4

REPORT INFORMATION
  Report Type: Spontaneous
  Country: DE (occurrence: DE)
  Receive Date: 20200520
  Receipt Date: 20211028
  Transmission Date: 20220303
  Serious: Yes (Other)
  Sender: FDA-Public Use
  Company Number: DE-002147023-NVSC2020DE119534

PATIENT
  Sex: Female

DRUGS (4)
  1. FLUOROURACIL [Suspect]
     Active Substance: FLUOROURACIL
     Indication: Metastatic gastric cancer
     Dosage: UNK
     Route: 065
  2. DOCETAXEL [Suspect]
     Active Substance: DOCETAXEL
     Indication: Metastatic gastric cancer
     Dosage: UNK
     Route: 065
  3. OXALIPLATIN [Suspect]
     Active Substance: OXALIPLATIN
     Indication: Metastatic gastric cancer
     Dosage: UNK
     Route: 065
  4. LEUCOVORIN [Concomitant]
     Active Substance: LEUCOVORIN
     Indication: Product used for unknown indication
     Dosage: UNK
     Route: 065

REACTIONS (3)
  - Metastases to peritoneum [Unknown]
  - Treatment failure [Unknown]
  - Disease recurrence [Unknown]

NARRATIVE: CASE EVENT DATE: 20190701
